FAERS Safety Report 9437221 (Version 1)
Quarter: 2013Q3

REPORT INFORMATION
  Report Type: Spontaneous
  Country: FI (occurrence: FI)
  Receive Date: 20130802
  Receipt Date: 20130802
  Transmission Date: 20140515
  Serious: Yes (Hospitalization)
  Sender: FDA-Public Use
  Company Number: PHHY2013FI081890

PATIENT
  Sex: Male

DRUGS (17)
  1. ZOMETA [Suspect]
     Indication: METASTASES TO BONE
     Dosage: 4 MG, UNK
     Dates: start: 20130725
  2. ZOMETA [Suspect]
     Dosage: 4 MG, UNK
     Dates: start: 20130727
  3. OXYNORM [Concomitant]
     Dosage: UNK UKN, UNK
  4. OXYCONTIN [Concomitant]
     Dosage: UNK UKN, UNK
  5. PROGRAF [Concomitant]
     Dosage: UNK UKN, UNK
     Dates: start: 20130618
  6. PRAVASTATIN [Concomitant]
  7. PRIMPERAN [Concomitant]
     Dosage: UNK UKN, UNK
  8. IDEOS [Concomitant]
     Dosage: UNK UKN, UNK
  9. MAREVAN [Concomitant]
     Dosage: UNK UKN, UNK
  10. NITRO [Concomitant]
     Dosage: UNK UKN, UNK
  11. ISANGINA [Concomitant]
     Dosage: UNK UKN, UNK
  12. LAXOBERON [Concomitant]
     Dosage: UNK UKN, UNK
  13. LEVOLAC [Concomitant]
     Dosage: UNK UKN, UNK
  14. MOVICOL [Concomitant]
     Dosage: UNK UKN, UNK
  15. DIASECTRAL [Concomitant]
     Dosage: UNK UKN, UNK
  16. SYSCOR [Concomitant]
     Dosage: UNK UKN, UNK
  17. EXPROS [Concomitant]
     Dosage: UNK UKN, UNK

REACTIONS (7)
  - Atrial fibrillation [Recovered/Resolved]
  - Cardiac disorder [Recovered/Resolved]
  - Emotional distress [Recovered/Resolved]
  - Constipation [Recovered/Resolved]
  - Malaise [Recovered/Resolved]
  - Nausea [Recovered/Resolved]
  - Medication error [Unknown]
